FAERS Safety Report 4473747-9 (Version None)
Quarter: 2004Q4

REPORT INFORMATION
  Report Type: 
  Country: None (occurrence: None)
  Receive Date: 20040907
  Receipt Date: 20030916
  Transmission Date: 20050328
  Serious: Yes (Hospitalization)
  Sender: FDA-Public Use
  Company Number: PHEH2003US07984

PATIENT
  Age: 57 Year
  Sex: Female
  Weight: 75 kg

DRUGS (2)
  1. NEORAL [Suspect]
     Indication: HEART TRANSPLANT
     Dosage: 175 MG, Q12H, ORAL
     Route: 048
     Dates: start: 20030812, end: 20030817
  2. NEORAL [Suspect]

REACTIONS (8)
  - BLOOD CREATININE INCREASED [None]
  - BLOOD PRESSURE INCREASED [None]
  - DIZZINESS [None]
  - DYSKINESIA [None]
  - GRAND MAL CONVULSION [None]
  - HEADACHE [None]
  - HYPOAESTHESIA [None]
  - PHOTOPSIA [None]
